FAERS Safety Report 23492626 (Version 1)
Quarter: 2024Q1

REPORT INFORMATION
  Report Type: Spontaneous
  Country: GB (occurrence: GB)
  Receive Date: 20240207
  Receipt Date: 20240207
  Transmission Date: 20240410
  Serious: Yes (Death, Hospitalization)
  Sender: FDA-Public Use
  Company Number: GB-ARISTO PHARMA-PREG202401041

PATIENT
  Age: 48 Year
  Sex: Male

DRUGS (2)
  1. NALOXONE [Suspect]
     Active Substance: NALOXONE
     Route: 065
  2. PREGABALIN [Suspect]
     Active Substance: PREGABALIN
     Indication: Product used for unknown indication
     Route: 065
     Dates: start: 202102

REACTIONS (4)
  - Death [Fatal]
  - Cardiac arrest [Fatal]
  - Overdose [Fatal]
  - Product prescribing issue [Fatal]

NARRATIVE: CASE EVENT DATE: 20230414
